FAERS Safety Report 15059387 (Version 1)
Quarter: 2018Q2

REPORT INFORMATION
  Report Type: Spontaneous
  Country: None (occurrence: US)
  Receive Date: 20180625
  Receipt Date: 20180625
  Transmission Date: 20180711
  Serious: No
  Sender: FDA-Public Use
  Company Number: US-MEDAC PHARMA, INC.-2049880

PATIENT
  Age: 4 Year
  Sex: Female
  Weight: 14.09 kg

DRUGS (3)
  1. ENBREL [Concomitant]
     Active Substance: ETANERCEPT
  2. CELEBREX [Concomitant]
     Active Substance: CELECOXIB
  3. RASUVO [Suspect]
     Active Substance: METHOTREXATE SODIUM
     Indication: JUVENILE IDIOPATHIC ARTHRITIS

REACTIONS (1)
  - Gastroenteritis viral [Recovering/Resolving]

NARRATIVE: CASE EVENT DATE: 20180612
